FAERS Safety Report 5454527-4 (Version None)
Quarter: 2007Q3

REPORT INFORMATION
  Report Type: 
  Country: None (occurrence: None)
  Receive Date: 20070917
  Receipt Date: 20060807
  Transmission Date: 20080115
  Serious: No
  Sender: FDA-Public Use
  Company Number: US-ASTRAZENECA-2006UW15652

PATIENT
  Age: 54 Year
  Sex: Female
  Weight: 100 kg

DRUGS (1)
  1. SEROQUEL [Suspect]
     Indication: BIPOLAR DISORDER
     Route: 048

REACTIONS (23)
  - ANOREXIA [None]
  - ANXIETY [None]
  - ASTHENIA [None]
  - ASTHMA [None]
  - BLOOD GLUCOSE DECREASED [None]
  - BLOOD GLUCOSE INCREASED [None]
  - DECREASED APPETITE [None]
  - DIARRHOEA [None]
  - DIZZINESS [None]
  - DRUG EFFECT DECREASED [None]
  - DRUG INEFFECTIVE [None]
  - FATIGUE [None]
  - FEAR [None]
  - FEELING ABNORMAL [None]
  - GLYCOSYLATED HAEMOGLOBIN INCREASED [None]
  - HYPOGLYCAEMIA [None]
  - NAUSEA [None]
  - NERVOUSNESS [None]
  - PANIC ATTACK [None]
  - STRESS [None]
  - THINKING ABNORMAL [None]
  - TREMOR [None]
  - WEIGHT DECREASED [None]
